FAERS Safety Report 9354548 (Version 1)
Quarter: 2013Q2

REPORT INFORMATION
  Report Type: Spontaneous
  Country: US (occurrence: US)
  Receive Date: 20130618
  Receipt Date: 20130618
  Transmission Date: 20140414
  Serious: No
  Sender: FDA-Public Use
  Company Number: US-PFIZER INC-2013182303

PATIENT
  Age: 57 Year
  Sex: Female
  Weight: 76.19 kg

DRUGS (2)
  1. VENLAFAXINE HCL [Suspect]
     Indication: DEPRESSION
     Dosage: UNK
  2. VENLAFAXINE HCL [Suspect]
     Indication: ANXIETY

REACTIONS (1)
  - Drug ineffective [Unknown]
